FAERS Safety Report 20305446 (Version 3)
Quarter: 2022Q1

REPORT INFORMATION
  Report Type: Report from Study
  Country: CO (occurrence: CO)
  Receive Date: 20220106
  Receipt Date: 20220127
  Transmission Date: 20220424
  Serious: Yes (Hospitalization, Other)
  Sender: FDA-Public Use
  Company Number: CO-ASTELLAS PHARMA GLOBAL DEVELOPMENT, INC.-2021US048508

PATIENT
  Age: 54 Year
  Sex: Male
  Weight: 57 kg

DRUGS (2)
  1. TACROLIMUS [Suspect]
     Active Substance: TACROLIMUS
     Indication: Renal transplant
     Route: 048
     Dates: start: 20210526
  2. APIDRA [Concomitant]
     Active Substance: INSULIN GLULISINE
     Indication: Product used for unknown indication
     Dosage: UNK, TWICE DAILY (8 UI IN THE MORNING AND 10 UI BEFORE LUNCH AND DINNER)
     Route: 065

REACTIONS (6)
  - Blood glucose fluctuation [Recovered/Resolved]
  - Condition aggravated [Recovered/Resolved]
  - Paronychia [Recovering/Resolving]
  - Inflammation [Recovering/Resolving]
  - Blood glucose increased [Recovered/Resolved]
  - Blood glucose abnormal [Recovered/Resolved]

NARRATIVE: CASE EVENT DATE: 20210606
